FAERS Safety Report 18741284 (Version 4)
Quarter: 2023Q2

REPORT INFORMATION
  Report Type: Spontaneous
  Country: US (occurrence: US)
  Receive Date: 20210114
  Receipt Date: 20230626
  Transmission Date: 20230722
  Serious: No
  Sender: FDA-Public Use
  Company Number: US-PFIZER INC-2021025942

PATIENT
  Age: 61 Year
  Sex: Female

DRUGS (1)
  1. IBRANCE [Suspect]
     Active Substance: PALBOCICLIB
     Dosage: 125 MG, CYCLIC (ONCE DAILY, ON DAYS 1-21 OF 28-DAY CYCLE)
     Route: 048
     Dates: start: 20201211

REACTIONS (2)
  - Fatigue [Unknown]
  - Product prescribing issue [Unknown]
